FAERS Safety Report 10421540 (Version 1)
Quarter: 2014Q3

REPORT INFORMATION
  Report Type: Spontaneous
  Country: FR (occurrence: FR)
  Receive Date: 20140901
  Receipt Date: 20140901
  Transmission Date: 20150326
  Serious: Yes (Hospitalization)
  Sender: FDA-Public Use
  Company Number: FR-MERCK-1408FRA012826

PATIENT
  Age: 23 Year
  Sex: Female

DRUGS (4)
  1. ORGALUTRAN [Concomitant]
     Active Substance: GANIRELIX ACETATE
     Dosage: UNK
     Route: 058
  2. OVITRELLE [Suspect]
     Active Substance: CHORIOGONADOTROPIN ALFA
     Dosage: UNK
     Route: 058
     Dates: start: 20140618, end: 20140618
  3. PROVAMES [Concomitant]
     Active Substance: ESTRADIOL
     Dosage: UNK
     Route: 048
  4. FOLLITROPIN BETA [Suspect]
     Active Substance: FOLLITROPIN
     Dosage: UNK
     Route: 065
     Dates: start: 20140606, end: 20140618

REACTIONS (3)
  - Ovarian hyperstimulation syndrome [Recovered/Resolved]
  - Haemorrhagic ovarian cyst [Recovered/Resolved]
  - Peritoneal haemorrhage [Recovered/Resolved]

NARRATIVE: CASE EVENT DATE: 20140620
